FAERS Safety Report 9197251 (Version 1)
Quarter: 2013Q1

REPORT INFORMATION
  Report Type: Spontaneous
  Country: US (occurrence: US)
  Receive Date: 20130328
  Receipt Date: 20130328
  Transmission Date: 20140127
  Serious: Yes (Hospitalization)
  Sender: FDA-Public Use
  Company Number: US-BAYER-2013-035324

PATIENT
  Age: 43 Year
  Sex: Female

DRUGS (6)
  1. YAZ [Suspect]
  2. TRIAMTERENE [Concomitant]
  3. PIROXICAM [Concomitant]
  4. PREVACID [Concomitant]
  5. EFFEXOR [Concomitant]
  6. SYNTHROID [Concomitant]

REACTIONS (1)
  - Pulmonary embolism [None]
